FAERS Safety Report 8801651 (Version 2)
Quarter: 2012Q4

REPORT INFORMATION
  Report Type: 
  Country: US (occurrence: US)
  Receive Date: 20120921
  Receipt Date: 20121008
  Transmission Date: 20130627
  Serious: Yes (Other)
  Sender: FDA-Public Use
  Company Number: US-PFIZER INC-2012231607

PATIENT
  Age: 55 Year
  Sex: Female
  Weight: 63.49 kg

DRUGS (4)
  1. CHANTIX [Suspect]
     Indication: SMOKING CESSATION THERAPY
     Dosage: 0.5 mg, 1x/day
     Route: 048
     Dates: start: 20111227
  2. CHANTIX [Suspect]
     Dosage: UNK
     Route: 048
     Dates: end: 201201
  3. PREDNISONE [Concomitant]
     Dosage: 10 mg, 1x/day
  4. ALBUTEROL [Concomitant]
     Dosage: UNK, 1x/day

REACTIONS (3)
  - Palpitations [Recovered/Resolved]
  - Heart rate increased [Recovered/Resolved]
  - Agitation [Recovered/Resolved]
